FAERS Safety Report 14239222 (Version 1)
Quarter: 2017Q4

REPORT INFORMATION
  Report Type: Spontaneous
  Country: US (occurrence: US)
  Receive Date: 20171127
  Receipt Date: 20171127
  Transmission Date: 20180321
  Serious: Yes (Other)
  Sender: FDA-Public Use
  Company Number: None

PATIENT
  Age: 35 Year
  Sex: Female
  Weight: 60.75 kg

DRUGS (1)
  1. ALBUTEROL SULFATE. [Suspect]
     Active Substance: ALBUTEROL SULFATE
     Indication: RESPIRATORY DISORDER
     Route: 055

REACTIONS (5)
  - Feeling of despair [None]
  - Insomnia [None]
  - Thinking abnormal [None]
  - Asthenia [None]
  - Speech disorder [None]

NARRATIVE: CASE EVENT DATE: 20151217
